FAERS Safety Report 4415374-5 (Version None)
Quarter: 2004Q3

REPORT INFORMATION
  Report Type: 
  Country: None (occurrence: None)
  Receive Date: 20040804
  Receipt Date: 20040727
  Transmission Date: 20050211
  Serious: Yes (Other)
  Sender: FDA-Public Use
  Company Number: JP-BRISTOL-MYERS SQUIBB COMPANY-12657839

PATIENT
  Age: 53 Year
  Sex: Male

DRUGS (9)
  1. EFAVIRENZ CAPS [Suspect]
     Indication: HIV INFECTION
     Dosage: ONCE DAILY
     Route: 048
     Dates: start: 20040609
  2. VIREAD [Suspect]
     Indication: HIV INFECTION
     Route: 048
     Dates: start: 20040609, end: 20040722
  3. VOLTAREN [Suspect]
     Indication: HAEMOPHILIC ARTHRITIS
     Route: 048
  4. EPIVIR [Concomitant]
     Dates: start: 20040609, end: 20040722
  5. URSO [Concomitant]
  6. BLOPRESS [Concomitant]
     Dates: start: 20040616
  7. ADALAT CC [Concomitant]
     Dates: start: 20040616
  8. GASTER [Concomitant]
     Dates: start: 20040603
  9. MUCOSTA [Concomitant]
     Dates: start: 20040603

REACTIONS (1)
  - PROTEINURIA [None]
